FAERS Safety Report 9116976 (Version 2)
Quarter: 2013Q2

REPORT INFORMATION
  Report Type: Spontaneous
  Country: DE (occurrence: DE)
  Receive Date: 20130225
  Receipt Date: 20130409
  Transmission Date: 20140414
  Serious: Yes (Death, Life-Threatening, Hospitalization)
  Sender: FDA-Public Use
  Company Number: DE-JNJFOC-20130211062

PATIENT
  Age: 78 Year
  Sex: Male

DRUGS (8)
  1. REOPRO [Suspect]
     Indication: ACUTE MYOCARDIAL INFARCTION
     Dosage: ADAPTED TO WEIGHT
     Route: 042
     Dates: start: 201212
  2. PANTOZOL [Concomitant]
     Route: 065
  3. ACETYL SALICYLIC ACID [Concomitant]
     Route: 065
  4. BISOPROLOL [Concomitant]
     Route: 065
  5. RAMIPRIL [Concomitant]
     Route: 065
  6. FUROSEMIDE [Concomitant]
     Route: 065
  7. BRILIQUE [Concomitant]
     Route: 065
  8. SINGULAIR [Concomitant]
     Route: 065

REACTIONS (3)
  - Death [Fatal]
  - Haemolysis [Unknown]
  - Incorrect route of drug administration [Unknown]
